FAERS Safety Report 9187401 (Version 1)
Quarter: 2013Q1

REPORT INFORMATION
  Report Type: Spontaneous
  Country: US (occurrence: US)
  Receive Date: 20130325
  Receipt Date: 20130325
  Transmission Date: 20140127
  Serious: Yes (Other)
  Sender: FDA-Public Use
  Company Number: US-TEVA-393689USA

PATIENT
  Sex: Female

DRUGS (2)
  1. PROVIGIL [Suspect]
  2. XYREM [Suspect]

REACTIONS (2)
  - Convulsion [Unknown]
  - Amnesia [Unknown]
